FAERS Safety Report 17237519 (Version 2)
Quarter: 2020Q1

REPORT INFORMATION
  Report Type: Spontaneous
  Country: JP (occurrence: JP)
  Receive Date: 20200106
  Receipt Date: 20200325
  Transmission Date: 20200409
  Serious: No
  Sender: FDA-Public Use
  Company Number: JP-BEH-2019110922

PATIENT
  Age: 18 Year
  Sex: Female

DRUGS (1)
  1. HIZENTRA [Suspect]
     Active Substance: HUMAN IMMUNOGLOBULIN G
     Indication: HYPOGAMMAGLOBULINAEMIA
     Dosage: 8 GRAM, QOW
     Route: 058
     Dates: start: 20190801, end: 20191205

REACTIONS (1)
  - Infusion site induration [Not Recovered/Not Resolved]

NARRATIVE: CASE EVENT DATE: 20191107
